FAERS Safety Report 12655221 (Version 1)
Quarter: 2016Q3

REPORT INFORMATION
  Report Type: Spontaneous
  Country: BR (occurrence: BR)
  Receive Date: 20160816
  Receipt Date: 20160816
  Transmission Date: 20161109
  Serious: Yes (Death, Hospitalization, Other)
  Sender: FDA-Public Use
  Company Number: BR-JNJFOC-20160810148

PATIENT
  Age: 76 Year
  Sex: Female
  Weight: 57 kg

DRUGS (8)
  1. HYDROCHLOROTHIAZIDE. [Concomitant]
     Active Substance: HYDROCHLOROTHIAZIDE
     Route: 065
  2. VITAMIN D3 [Concomitant]
     Active Substance: CHOLECALCIFEROL
     Route: 065
  3. SOFOSBUVIR [Suspect]
     Active Substance: SOFOSBUVIR
     Indication: HEPATITIS C
     Route: 065
     Dates: start: 20160624, end: 20160717
  4. ACEBROFILINA [Concomitant]
     Route: 065
  5. LOSARTAN. [Concomitant]
     Active Substance: LOSARTAN
     Route: 065
  6. OLYSIO [Suspect]
     Active Substance: SIMEPREVIR
     Indication: HEPATITIS C
     Route: 065
     Dates: start: 20160624, end: 20160717
  7. FORMOTEROL [Concomitant]
     Active Substance: FORMOTEROL
     Route: 065
  8. DIOSMIN W/HESPERIDIN [Concomitant]
     Route: 065

REACTIONS (9)
  - Haemoglobin decreased [Unknown]
  - Thrombocytopenia [Unknown]
  - Haemodynamic instability [Fatal]
  - Somnolence [Unknown]
  - Confusional state [Unknown]
  - Hyponatraemia [Unknown]
  - Lung disorder [Unknown]
  - Constipation [Unknown]
  - Vomiting [Unknown]

NARRATIVE: CASE EVENT DATE: 201607
